FAERS Safety Report 5821295-3 (Version None)
Quarter: 2008Q3

REPORT INFORMATION
  Report Type: 
  Country: None (occurrence: None)
  Receive Date: 20080722
  Receipt Date: 20080722
  Transmission Date: 20090109
  Serious: Yes (Life-Threatening, Hospitalization)
  Sender: FDA-Public Use
  Company Number: None

PATIENT
  Age: 86 Year
  Sex: Female
  Weight: 68.0396 kg

DRUGS (1)
  1. DIGITEK MYLAN/BERTEK UDL [Suspect]
     Indication: HEART RATE IRREGULAR
     Dates: start: 20060301, end: 20080428

REACTIONS (7)
  - CEREBROVASCULAR ACCIDENT [None]
  - HALLUCINATION [None]
  - HEART RATE IRREGULAR [None]
  - ILL-DEFINED DISORDER [None]
  - LEUKAEMIA [None]
  - LYMPHOMA [None]
  - RENAL FAILURE [None]
